FAERS Safety Report 8438079-2 (Version None)
Quarter: 2012Q2

REPORT INFORMATION
  Report Type: 
  Country: None (occurrence: None)
  Receive Date: 20120614
  Receipt Date: 20120601
  Transmission Date: 20120825
  Serious: Yes (Life-Threatening)
  Sender: FDA-Public Use
  Company Number: GB-MYLANLABS-2012S1011518

PATIENT
  Sex: Female

DRUGS (3)
  1. FLUOXETINE [Suspect]
     Route: 064
  2. METHADONE HCL [Concomitant]
     Route: 064
  3. DIAZEPAM [Concomitant]
     Route: 064

REACTIONS (15)
  - NEONATAL COMPLICATIONS OF SUBSTANCE ABUSE [None]
  - TACHYPNOEA [None]
  - METABOLIC ACIDOSIS [None]
  - ELECTROCARDIOGRAM QT PROLONGED [None]
  - MATERNAL EXPOSURE DURING PREGNANCY [None]
  - CRYING [None]
  - DIARRHOEA [None]
  - MUSCLE RIGIDITY [None]
  - BRADYCARDIA [None]
  - RESPIRATORY DISTRESS [None]
  - CONVULSION [None]
  - PREMATURE BABY [None]
  - AGITATION NEONATAL [None]
  - WEIGHT DECREASED [None]
  - STRIDOR [None]
